FAERS Safety Report 4642254-2 (Version None)
Quarter: 2005Q2

REPORT INFORMATION
  Report Type: 
  Country: None (occurrence: None)
  Receive Date: 20050421
  Receipt Date: 20050421
  Transmission Date: 20051028
  Serious: Yes (Life-Threatening, Hospitalization)
  Sender: FDA-Public Use
  Company Number: None

PATIENT
  Sex: Female
  Weight: 78.7 kg

DRUGS (9)
  1. DIGOXIN [Suspect]
     Indication: CARDIAC FAILURE CONGESTIVE
     Dosage: 0.25 MG PO DAILY
     Route: 048
  2. COUMADIN [Concomitant]
  3. ATENOLOL [Concomitant]
  4. VERAPAMIL [Concomitant]
  5. ENALAPRIL [Concomitant]
  6. ALLOPURINOL [Concomitant]
  7. PREVACID [Concomitant]
  8. PHENERGAN [Concomitant]
  9. LASIX [Concomitant]

REACTIONS (8)
  - ABDOMINAL PAIN [None]
  - ATRIAL FIBRILLATION [None]
  - DIARRHOEA [None]
  - LOSS OF CONSCIOUSNESS [None]
  - NAUSEA [None]
  - SYNCOPE [None]
  - THERAPY NON-RESPONDER [None]
  - VOMITING [None]
